FAERS Safety Report 18510667 (Version 2)
Quarter: 2020Q4

REPORT INFORMATION
  Report Type: Spontaneous
  Country: IT (occurrence: IT)
  Receive Date: 20201117
  Receipt Date: 20201202
  Transmission Date: 20210114
  Serious: Yes (Other)
  Sender: FDA-Public Use
  Company Number: IT-LUPIN PHARMACEUTICALS INC.-2020-08956

PATIENT
  Age: 25 Year
  Sex: Female

DRUGS (3)
  1. CETIRIZINE [Suspect]
     Active Substance: CETIRIZINE HYDROCHLORIDE
     Indication: CHRONIC SPONTANEOUS URTICARIA
     Dosage: 10 MILLIGRAM, QD
     Route: 065
  2. CETIRIZINE [Suspect]
     Active Substance: CETIRIZINE HYDROCHLORIDE
     Dosage: 40 MILLIGRAM, QD
     Route: 065
  3. LEVONORGESTREL AND ETHINYL ESTRADIOL [Suspect]
     Active Substance: ETHINYL ESTRADIOL\LEVONORGESTREL
     Indication: CONTRACEPTION
     Dosage: UNK (0,100 MILLIGRAM (MG) PLUS 0,02 MG), FILM-COATED TABLETS
     Route: 065
     Dates: start: 201601, end: 201809

REACTIONS (4)
  - Somnolence [Unknown]
  - Quality of life decreased [Recovered/Resolved]
  - Fatigue [Unknown]
  - Chronic spontaneous urticaria [Recovered/Resolved]

NARRATIVE: CASE EVENT DATE: 201608
